FAERS Safety Report 8509528-6 (Version None)
Quarter: 2012Q3

REPORT INFORMATION
  Report Type: 
  Country: None (occurrence: None)
  Receive Date: 20120713
  Receipt Date: 20120629
  Transmission Date: 20120928
  Serious: Yes (Death)
  Sender: FDA-Public Use
  Company Number: DE-UCBSA-013681

PATIENT
  Age: 85 Year
  Sex: Female

DRUGS (5)
  1. PRAMIPEXOLE DIHYDROCHLORIDE [Concomitant]
     Dosage: UNKNOWN DOSE
  2. NEUPRO [Suspect]
     Dosage: 8 MG/24 H
     Dates: start: 20070101
  3. MADOPAR [Concomitant]
     Dosage: UNKNOWN DOSE
  4. NEUPRO [Suspect]
     Dosage: 4 MG/24 H
  5. ENTACAPONE [Concomitant]
     Dosage: UNKNOWN DOSE

REACTIONS (4)
  - ILL-DEFINED DISORDER [None]
  - APPLICATION SITE PRURITUS [None]
  - APPLICATION SITE IRRITATION [None]
  - ERYTHEMA [None]
